FAERS Safety Report 12980021 (Version 3)
Quarter: 2017Q1

REPORT INFORMATION
  Report Type: Spontaneous
  Country: IE (occurrence: IE)
  Receive Date: 20161128
  Receipt Date: 20170222
  Transmission Date: 20170428
  Serious: Yes (Hospitalization, Other)
  Sender: FDA-Public Use
  Company Number: IE-BAYER-2016-220684

PATIENT
  Sex: Male

DRUGS (1)
  1. XOFIGO [Suspect]
     Active Substance: RADIUM RA-223 DICHLORIDE
     Indication: HORMONE-REFRACTORY PROSTATE CANCER
     Dosage: PATIENT RECEIVED APPROXIMATELY 3 OR 4 INJECTIONS OF RADIUM-223.
     Route: 042

REACTIONS (4)
  - Prostate cancer [None]
  - Prostatic specific antigen increased [None]
  - Metastasis [None]
  - Bone pain [None]
